FAERS Safety Report 9671546 (Version 1)
Quarter: 2013Q4

REPORT INFORMATION
  Report Type: Spontaneous
  Country: US (occurrence: US)
  Receive Date: 20131106
  Receipt Date: 20131106
  Transmission Date: 20140711
  Serious: No
  Sender: FDA-Public Use
  Company Number: US-PFIZER INC-2013315301

PATIENT
  Sex: Female

DRUGS (2)
  1. LYRICA [Suspect]
     Indication: FIBROMYALGIA
     Dosage: 25 MG, 2X/DAY
     Dates: start: 20131101
  2. FLEXERIL [Concomitant]
     Indication: PAIN
     Dosage: UNK

REACTIONS (5)
  - Intentional drug misuse [Unknown]
  - Activities of daily living impaired [Unknown]
  - Headache [Unknown]
  - Euphoric mood [Unknown]
  - Feeling abnormal [Unknown]
